FAERS Safety Report 4620518-6 (Version None)
Quarter: 2005Q1

REPORT INFORMATION
  Report Type: 
  Country: None (occurrence: None)
  Receive Date: 20050328
  Receipt Date: 20041217
  Transmission Date: 20050727
  Serious: Yes (Death, Hospitalization)
  Sender: FDA-Public Use
  Company Number: US-GLAXOSMITHKLINE-A0537933A

PATIENT
  Sex: Male
  Weight: 75.5 kg

DRUGS (1)
  1. PAXIL [Suspect]
     Indication: AFFECTIVE DISORDER
     Dosage: 10MG PER DAY
     Route: 048
     Dates: start: 20020610, end: 20020701

REACTIONS (6)
  - AGGRESSION [None]
  - AGITATION [None]
  - ANGER [None]
  - ANXIETY [None]
  - COMPLETED SUICIDE [None]
  - TREATMENT NONCOMPLIANCE [None]
